FAERS Safety Report 4807054-9 (Version None)
Quarter: 2005Q4

REPORT INFORMATION
  Report Type: 
  Country: None (occurrence: None)
  Receive Date: 20051019
  Receipt Date: 20051005
  Transmission Date: 20060501
  Serious: Yes (Other)
  Sender: FDA-Public Use
  Company Number: 230003K05CAN

PATIENT
  Age: 54 Year
  Sex: Male

DRUGS (1)
  1. REBIF [Suspect]
     Indication: MULTIPLE SCLEROSIS
     Dates: start: 19990101

REACTIONS (4)
  - APPENDICITIS [None]
  - HAEMOGLOBIN ABNORMAL [None]
  - NON-HODGKIN'S LYMPHOMA [None]
  - WHITE BLOOD CELL COUNT INCREASED [None]
